FAERS Safety Report 12314566 (Version 1)
Quarter: 2016Q2

REPORT INFORMATION
  Report Type: Report from Study
  Country: DK (occurrence: IT)
  Receive Date: 20160428
  Receipt Date: 20160428
  Transmission Date: 20160815
  Serious: Yes (Hospitalization)
  Sender: FDA-Public Use
  Company Number: IT-FRI-1000084116

PATIENT
  Age: 66 Year
  Sex: Female

DRUGS (5)
  1. ESCITALOPRAM [Suspect]
     Active Substance: ESCITALOPRAM OXALATE
     Indication: DRUG ABUSE
     Dosage: OVERDOSE: 28 DF (10 MG X 28 = 280MG)
     Route: 048
     Dates: start: 20160129, end: 20160129
  2. ESCITALOPRAM [Suspect]
     Active Substance: ESCITALOPRAM OXALATE
     Indication: PRODUCT USED FOR UNKNOWN INDICATION
     Dosage: 10 MG
     Route: 048
  3. XANAX [Suspect]
     Active Substance: ALPRAZOLAM
     Indication: PRODUCT USED FOR UNKNOWN INDICATION
     Route: 048
  4. XANAX [Suspect]
     Active Substance: ALPRAZOLAM
     Indication: DRUG ABUSE
     Dosage: OVERDOSE: 60 DF ((0.25 MG X 60= 15 MG)
     Route: 048
     Dates: start: 20160129, end: 20160129
  5. NEURONTIN/ GABAPENTIN [Concomitant]
     Indication: PRODUCT USED FOR UNKNOWN INDICATION
     Route: 048

REACTIONS (6)
  - Toxicity to various agents [Unknown]
  - Drug abuse [Unknown]
  - Intentional overdose [Unknown]
  - Speech disorder [Unknown]
  - Intentional overdose [None]
  - Hypokinesia [Unknown]

NARRATIVE: CASE EVENT DATE: 20160129
